FAERS Safety Report 23782995 (Version 1)
Quarter: 2024Q2

REPORT INFORMATION
  Report Type: Spontaneous
  Country: IT (occurrence: IT)
  Receive Date: 20240425
  Receipt Date: 20240425
  Transmission Date: 20240716
  Serious: Yes (Hospitalization)
  Sender: FDA-Public Use
  Company Number: IT-AUROBINDO-AUR-APL-2024-018755

PATIENT
  Age: 12 Year
  Sex: Male

DRUGS (1)
  1. RISPERIDONE [Suspect]
     Active Substance: RISPERIDONE
     Indication: Product used for unknown indication
     Dosage: 2.5 MILLIGRAM (0.25MG/SINGLE ADMINISTRATION UNDERTAKEN DOSE: 2.5 MG/SINGLE ADMINISTRATION. TOT: N. 1
     Route: 048

REACTIONS (7)
  - Confusional state [Recovered/Resolved]
  - Bradykinesia [Recovered/Resolved]
  - Somnolence [Recovered/Resolved]
  - Toxicity to various agents [Unknown]
  - Accidental overdose [Recovered/Resolved]
  - Device use error [Unknown]
  - Product administration error [Unknown]

NARRATIVE: CASE EVENT DATE: 20230516
